FAERS Safety Report 16586861 (Version 1)
Quarter: 2019Q3

REPORT INFORMATION
  Report Type: Spontaneous
  Country: US (occurrence: US)
  Receive Date: 20190604
  Receipt Date: 20190604
  Transmission Date: 20191004
  Serious: Yes (Hospitalization)
  Sender: FDA-Public Use
  Company Number: None

PATIENT
  Age: 29 Year
  Sex: Female

DRUGS (1)
  1. COSENTYX [Suspect]
     Active Substance: SECUKINUMAB
     Indication: PSORIATIC ARTHROPATHY
     Dosage: ?300MG (2 150MG PENS) SQ EVERY 4 WEEKS INJECTION
     Route: 058
     Dates: start: 20190323

REACTIONS (3)
  - Injection site bruising [None]
  - Therapy non-responder [None]
  - Urinary tract infection [None]
